FAERS Safety Report 5382382-X (Version None)
Quarter: 2007Q3

REPORT INFORMATION
  Report Type: 
  Country: None (occurrence: None)
  Receive Date: 20070709
  Receipt Date: 20070629
  Transmission Date: 20080115
  Serious: Yes (Other)
  Sender: FDA-Public Use
  Company Number: GB-ALLERGAN-0707097US

PATIENT
  Sex: Female

DRUGS (1)
  1. DYSPORT [Suspect]
     Indication: SKIN WRINKLING
     Dosage: 162 UNITS, SINGLE
     Route: 030
     Dates: start: 20070317, end: 20070317

REACTIONS (5)
  - INFLAMMATION [None]
  - MALAISE [None]
  - PYREXIA [None]
  - RASH [None]
  - SKIN NODULE [None]
